FAERS Safety Report 9100780 (Version 1)
Quarter: 2013Q1

REPORT INFORMATION
  Report Type: Spontaneous
  Country: US (occurrence: None)
  Receive Date: 20130220
  Receipt Date: 20130220
  Transmission Date: 20140127
  Serious: Yes (Death)
  Sender: FDA-Public Use
  Company Number: None

PATIENT
  Age: 79 Year
  Sex: Male
  Weight: 96.16 kg

DRUGS (1)
  1. PAROXETINE [Suspect]
     Indication: CEREBROVASCULAR ACCIDENT

REACTIONS (2)
  - Drowning [None]
  - Overdose [None]
